FAERS Safety Report 20383473 (Version 2)
Quarter: 2022Q1

REPORT INFORMATION
  Report Type: Report from Study
  Country: CA (occurrence: CA)
  Receive Date: 20220127
  Receipt Date: 20220318
  Transmission Date: 20220423
  Serious: Yes (Other)
  Sender: FDA-Public Use
  Company Number: CA-TAKEDA-2021TUS058042

PATIENT
  Age: 57 Year
  Sex: Male

DRUGS (3)
  1. VEDOLIZUMAB [Suspect]
     Active Substance: VEDOLIZUMAB
     Indication: Crohn^s disease
     Dosage: 300 MILLIGRAM
     Route: 042
     Dates: start: 20210803
  2. VEDOLIZUMAB [Suspect]
     Active Substance: VEDOLIZUMAB
     Dosage: 300 MILIGRAM
     Route: 042
  3. HYDROXYZINE [Concomitant]
     Active Substance: HYDROXYZINE HYDROCHLORIDE
     Dosage: UNK

REACTIONS (16)
  - Crohn^s disease [Unknown]
  - Abdominal pain [Unknown]
  - Insomnia [Unknown]
  - Dizziness [Unknown]
  - Diarrhoea [Unknown]
  - Dyschezia [Unknown]
  - Balance disorder [Unknown]
  - Malaise [Recovered/Resolved]
  - Alopecia [Unknown]
  - Eyelid irritation [Unknown]
  - Decreased appetite [Unknown]
  - Nasal congestion [Unknown]
  - Arthralgia [Unknown]
  - Headache [Unknown]
  - Oropharyngeal pain [Unknown]
  - Fatigue [Unknown]

NARRATIVE: CASE EVENT DATE: 20210913
